FAERS Safety Report 19856121 (Version 1)
Quarter: 2021Q3

REPORT INFORMATION
  Report Type: Spontaneous
  Country: DE (occurrence: DE)
  Receive Date: 20210920
  Receipt Date: 20210920
  Transmission Date: 20211014
  Serious: Yes (Other)
  Sender: FDA-Public Use
  Company Number: DE-TEVA-2021-DE-1953127

PATIENT
  Age: 34 Year
  Sex: Female
  Weight: 65 kg

DRUGS (3)
  1. VALPROAT [Concomitant]
     Active Substance: VALPROATE SODIUM
     Indication: SCHIZOAFFECTIVE DISORDER
     Dosage: 900 [MG / D (UP TO 800)] , ADDITIONAL INFO : 0. ? 6.5. GESTATIONAL WEEK
     Route: 048
     Dates: start: 20200322, end: 20200508
  2. FOLSAURE [Concomitant]
     Active Substance: FOLIC ACID
     Indication: PROPHYLAXIS OF NEURAL TUBE DEFECT
     Dosage: ADDITIONAL INFO : TRIMESTER: UNKNOWN TRIMESTER
     Route: 048
  3. ARIPIPRAZOL [Suspect]
     Active Substance: ARIPIPRAZOLE
     Indication: SCHIZOAFFECTIVE DISORDER
     Dosage: ADDITIONAL INFO : 0. ? 36.5. GESTATIONAL WEEK
     Route: 048
     Dates: start: 20200322, end: 20201204

REACTIONS (2)
  - Exposure during pregnancy [Unknown]
  - Gestational diabetes [Recovered/Resolved]

NARRATIVE: CASE EVENT DATE: 20200322
